FAERS Safety Report 19804438 (Version 2)
Quarter: 2022Q3

REPORT INFORMATION
  Report Type: Spontaneous
  Country: US (occurrence: None)
  Receive Date: 20210908
  Receipt Date: 20220907
  Transmission Date: 20221027
  Serious: No
  Sender: FDA-Public Use
  Company Number: US-FARMAPROD-202106-0922

PATIENT
  Sex: Female

DRUGS (22)
  1. OXERVATE [Suspect]
     Active Substance: CENEGERMIN-BKBJ
     Indication: Neurotrophic keratopathy
     Route: 047
     Dates: start: 20210520, end: 20210723
  2. OXERVATE [Suspect]
     Active Substance: CENEGERMIN-BKBJ
     Dates: start: 20210930
  3. PRED FORTE [Concomitant]
     Active Substance: PREDNISOLONE ACETATE
  4. ANORO ELLIPTA [Concomitant]
     Active Substance: UMECLIDINIUM BROMIDE\VILANTEROL TRIFENATATE
     Dosage: 62.5MCG-25MCG BLISTER WITH DEVICE
  5. CRESTOR [Concomitant]
     Active Substance: ROSUVASTATIN CALCIUM
  6. CITALOPRAM [Concomitant]
     Active Substance: CITALOPRAM HYDROBROMIDE
  7. ALPRAZOLAM [Concomitant]
     Active Substance: ALPRAZOLAM
  8. ALENDRONATE SODIUM [Concomitant]
     Active Substance: ALENDRONATE SODIUM
  9. OZEMPIC [Concomitant]
     Active Substance: SEMAGLUTIDE
     Dosage: 1ML-0.75 ML PEN INJECTION
  10. METFORMIN [Concomitant]
     Active Substance: METFORMIN HYDROCHLORIDE
     Dosage: EXTENDED RELEASE GASTRIC
  11. GABAPENTIN [Concomitant]
     Active Substance: GABAPENTIN
  12. ORENCIA [Concomitant]
     Active Substance: ABATACEPT
  13. POTASSIUM CHLORIDE [Concomitant]
     Active Substance: POTASSIUM CHLORIDE
  14. VASCEPA [Concomitant]
     Active Substance: ICOSAPENT ETHYL
  15. GLIMEPIRIDE [Concomitant]
     Active Substance: GLIMEPIRIDE
  16. OFLOXACIN [Concomitant]
     Active Substance: OFLOXACIN
  17. LEFLUNOMIDE [Concomitant]
     Active Substance: LEFLUNOMIDE
  18. CLOPIDOGREL [Concomitant]
     Active Substance: CLOPIDOGREL BISULFATE
  19. ERYTHROMYCIN [Concomitant]
     Active Substance: ERYTHROMYCIN
  20. ALLOPURINOL [Concomitant]
     Active Substance: ALLOPURINOL
  21. FUROSEMIDE [Concomitant]
     Active Substance: FUROSEMIDE
  22. ASPIRIN [Concomitant]
     Active Substance: ASPIRIN

REACTIONS (1)
  - Intentional product misuse [Unknown]
